FAERS Safety Report 5996761-0 (Version None)
Quarter: 2008Q4

REPORT INFORMATION
  Report Type: 
  Country: None (occurrence: None)
  Receive Date: 20081210
  Receipt Date: 20080903
  Transmission Date: 20090506
  Serious: Yes (Other)
  Sender: FDA-Public Use
  Company Number: CHPA2008US21365

PATIENT
  Sex: Female

DRUGS (1)
  1. VOLTAREN [Suspect]
     Indication: NEURALGIA
     Dosage: 2 G, TID X 3 DAYS, TOPICAL
     Route: 061
     Dates: start: 20080901, end: 20080901

REACTIONS (3)
  - APPLICATION SITE INFECTION [None]
  - APPLICATION SITE NECROSIS [None]
  - APPLICATION SITE SCAR [None]
